FAERS Safety Report 7990372-3 (Version None)
Quarter: 2011Q4

REPORT INFORMATION
  Report Type: 
  Country: None (occurrence: None)
  Receive Date: 20111219
  Receipt Date: 20110802
  Transmission Date: 20120403
  Serious: No
  Sender: FDA-Public Use
  Company Number: US-ASTRAZENECA-2005UW02394

PATIENT
  Age: 69 Year
  Sex: Female
  Weight: 96.6 kg

DRUGS (11)
  1. CRESTOR [Suspect]
     Indication: HYPERCHOLESTEROLAEMIA
     Route: 048
     Dates: start: 20050201
  2. CRESTOR [Suspect]
     Route: 048
  3. LOVAZA [Concomitant]
  4. SEREVENT [Concomitant]
  5. FUROSEMIDE [Concomitant]
  6. NIASPAN [Concomitant]
  7. ASPIRIN [Concomitant]
  8. DIOVAN [Concomitant]
  9. NEXIUM [Concomitant]
  10. FLOVENT [Concomitant]
  11. SIMVASTATIN [Concomitant]

REACTIONS (8)
  - VISION BLURRED [None]
  - ONYCHOCLASIS [None]
  - DIZZINESS [None]
  - MYALGIA [None]
  - BLOOD CHOLESTEROL INCREASED [None]
  - ARTHRALGIA [None]
  - PAIN [None]
  - ALOPECIA [None]
